FAERS Safety Report 5300053-2 (Version None)
Quarter: 2007Q2

REPORT INFORMATION
  Report Type: 
  Country: None (occurrence: None)
  Receive Date: 20070417
  Receipt Date: 20061023
  Transmission Date: 20071010
  Serious: Yes (Congenital Anomaly, Other)
  Sender: FDA-Public Use
  Company Number: US-PFIZER INC-001-0981-M0203128

PATIENT
  Sex: Female
  Weight: 81.6 kg

DRUGS (13)
  1. LIPITOR [Suspect]
     Indication: BLOOD CHOLESTEROL INCREASED
     Route: 048
     Dates: start: 20020401, end: 20020502
  2. CELEBREX [Suspect]
     Indication: ARTHRITIS
  3. NORVASC [Suspect]
     Indication: HYPERTENSION
  4. ZESTRIL [Concomitant]
     Route: 065
  5. RABEPRAZOLE SODIUM [Concomitant]
     Route: 065
  6. VITAMIN E [Concomitant]
     Route: 065
  7. VITAMIN D [Concomitant]
     Route: 065
  8. ASCORBIC ACID [Concomitant]
     Route: 065
  9. CITRACAL [Concomitant]
     Route: 065
  10. POTASSIUM CHLORIDE [Concomitant]
     Route: 065
  11. HYDROCHLOROTHIAZIDE [Concomitant]
     Route: 065
  12. VITAMIN B COMPLEX CAP [Concomitant]
     Route: 048
  13. NASONEX [Concomitant]
     Route: 045

REACTIONS (26)
  - ALOPECIA [None]
  - ANOREXIA [None]
  - ARTHRALGIA [None]
  - BLOOD CHOLESTEROL INCREASED [None]
  - CEREBRAL HAEMORRHAGE [None]
  - DEPRESSION [None]
  - DYSSTASIA [None]
  - EMOTIONAL DISTRESS [None]
  - FATIGUE [None]
  - FINGER DEFORMITY [None]
  - GAIT DISTURBANCE [None]
  - HEADACHE [None]
  - HYPERTENSION [None]
  - HYPOAESTHESIA [None]
  - ISCHAEMIA [None]
  - JOINT SWELLING [None]
  - KIDNEY ENLARGEMENT [None]
  - LIVER DISORDER [None]
  - MUSCULOSKELETAL STIFFNESS [None]
  - MYALGIA [None]
  - NEOPLASM [None]
  - NOCTURIA [None]
  - PARAESTHESIA [None]
  - TENDONITIS [None]
  - WEIGHT DECREASED [None]
  - WEIGHT INCREASED [None]
